FAERS Safety Report 8907774 (Version 1)
Quarter: 2012Q4

REPORT INFORMATION
  Report Type: 
  Country: US (occurrence: US)
  Receive Date: 20121113
  Receipt Date: 20121113
  Transmission Date: 20130627
  Serious: No
  Sender: FDA-Public Use
  Company Number: US-AMGEN-USASP2012010379

PATIENT
  Sex: Female
  Weight: 61.22 kg

DRUGS (4)
  1. ENBREL [Suspect]
     Indication: PRODUCT USED FOR UNKNOWN INDICATION
     Dosage: 25 mg, 2 times/wk
     Route: 058
  2. IBUPROFEN [Concomitant]
  3. PREDNISONE [Concomitant]
  4. SUDAFED                            /00076302/ [Concomitant]
     Dosage: 120 mg, UNK

REACTIONS (1)
  - Headache [Unknown]
